APPROVED DRUG PRODUCT: THALOMID
Active Ingredient: THALIDOMIDE
Strength: 100MG
Dosage Form/Route: CAPSULE;ORAL
Application: N020785 | Product #002
Applicant: BRISTOL-MYERS SQUIBB CO
Approved: Jan 17, 2003 | RLD: Yes | RS: No | Type: RX